FAERS Safety Report 11927336 (Version 2)
Quarter: 2016Q2

REPORT INFORMATION
  Report Type: Spontaneous
  Country: DE (occurrence: DE)
  Receive Date: 20160119
  Receipt Date: 20160419
  Transmission Date: 20160815
  Serious: Yes (Other)
  Sender: FDA-Public Use
  Company Number: DE-OTSUKA-2016_001017

PATIENT
  Age: 33 Year
  Sex: Male

DRUGS (2)
  1. XEPLION [Suspect]
     Active Substance: PALIPERIDONE PALMITATE
     Indication: PRODUCT USED FOR UNKNOWN INDICATION
     Dosage: UNK
     Route: 065
  2. ABILIFY MAINTENA [Suspect]
     Active Substance: ARIPIPRAZOLE
     Indication: PRODUCT USED FOR UNKNOWN INDICATION
     Dosage: UNK, EVERY 28 DAYS
     Route: 030
     Dates: start: 201411, end: 20160101

REACTIONS (13)
  - Feeling abnormal [Unknown]
  - Body temperature decreased [Unknown]
  - Suicidal ideation [Unknown]
  - Tremor [Unknown]
  - Psychotic disorder [Unknown]
  - Drug dose omission [Unknown]
  - Bruxism [Not Recovered/Not Resolved]
  - Body fat disorder [Unknown]
  - Seizure [Unknown]
  - Gingival recession [Unknown]
  - Periodontitis [Unknown]
  - Tardive dyskinesia [Unknown]
  - Lethargy [Unknown]

NARRATIVE: CASE EVENT DATE: 201411
